FAERS Safety Report 21540683 (Version 1)
Quarter: 2022Q4

REPORT INFORMATION
  Report Type: Spontaneous
  Country: DE (occurrence: DE)
  Receive Date: 20221102
  Receipt Date: 20221102
  Transmission Date: 20230113
  Serious: Yes (Hospitalization)
  Sender: FDA-Public Use
  Company Number: DE-ABBVIE-4170458

PATIENT
  Sex: Female

DRUGS (12)
  1. ALLOPURINOL [Suspect]
     Active Substance: ALLOPURINOL
     Indication: Product used for unknown indication
     Dosage: UNK
     Route: 065
  2. VENCLEXTA [Suspect]
     Active Substance: VENETOCLAX
     Indication: Chronic lymphocytic leukaemia
     Dosage: 20 MG, QD
     Route: 048
     Dates: start: 20210821, end: 2021
  3. VENCLEXTA [Suspect]
     Active Substance: VENETOCLAX
     Dosage: 50 MG, QD
     Route: 048
     Dates: start: 20210901, end: 2021
  4. VENCLEXTA [Suspect]
     Active Substance: VENETOCLAX
     Dosage: 100 MG, QD
     Route: 048
     Dates: start: 20210927
  5. RITUXIMAB [Concomitant]
     Active Substance: RITUXIMAB
     Indication: Product used for unknown indication
     Dosage: 375 MG
     Route: 065
     Dates: start: 20210807, end: 2021
  6. RITUXIMAB [Concomitant]
     Active Substance: RITUXIMAB
     Dosage: 500 MG
     Route: 065
     Dates: start: 20211105, end: 2021
  7. RITUXIMAB [Concomitant]
     Active Substance: RITUXIMAB
     Dosage: 5000 MG/M2 (D15)
     Route: 065
     Dates: start: 20211230
  8. RITUXIMAB [Concomitant]
     Active Substance: RITUXIMAB
     Dosage: 500 MG/M2 (D15)
     Route: 065
     Dates: start: 20211230
  9. ACALABRUTINIB [Concomitant]
     Active Substance: ACALABRUTINIB
     Indication: Product used for unknown indication
     Dosage: 100 MG, BID (0.5 DAY)
     Route: 065
     Dates: start: 20211205
  10. METHIMAZOLE [Concomitant]
     Active Substance: METHIMAZOLE
     Indication: Product used for unknown indication
     Dosage: UNK
     Route: 065
  11. PROPRANOLOL [Concomitant]
     Active Substance: PROPRANOLOL HYDROCHLORIDE
     Indication: Product used for unknown indication
     Dosage: UNK
     Route: 065
  12. CORTISONE [Concomitant]
     Active Substance: CORTISONE
     Indication: Product used for unknown indication
     Dosage: UNK
     Route: 065

REACTIONS (5)
  - Folliculitis [Unknown]
  - Pruritus [Unknown]
  - Skin reaction [Unknown]
  - Hyperthyroidism [Unknown]
  - Pseudomonas infection [Unknown]
